FAERS Safety Report 5855349-2 (Version None)
Quarter: 2008Q3

REPORT INFORMATION
  Report Type: 
  Country: None (occurrence: None)
  Receive Date: 20080821
  Receipt Date: 20080806
  Transmission Date: 20090109
  Serious: Yes (Death)
  Sender: FDA-Public Use
  Company Number: 2008AL006508

PATIENT
  Age: 75 Year
  Sex: Female

DRUGS (16)
  1. DIGOXIN [Suspect]
     Indication: ARRHYTHMIA
     Dosage: 0.125MG DAILY PO;  0.25MG DAILY PO
     Route: 048
     Dates: start: 20080123, end: 20080125
  2. DIGOXIN [Suspect]
     Indication: ARRHYTHMIA
     Dosage: 0.125MG DAILY PO;  0.25MG DAILY PO
     Route: 048
     Dates: start: 20080123
  3. ASPIRIN [Concomitant]
  4. PLAVIX [Concomitant]
  5. COLACE [Concomitant]
  6. INSORA [Concomitant]
  7. LEXAPRO [Concomitant]
  8. FLONASE [Concomitant]
  9. NOVOLOG SLIDING SCALE AC AND HS [Concomitant]
  10. ATROVENT [Concomitant]
  11. XOPENEX [Concomitant]
  12. CLARITIN [Concomitant]
  13. TOPROL-XL [Concomitant]
  14. PROLONIX [Concomitant]
  15. PREDNISONE TAB [Concomitant]
  16. ALDACE [Concomitant]

REACTIONS (23)
  - ANAEMIA [None]
  - ANXIETY [None]
  - CARDIAC FAILURE CONGESTIVE [None]
  - CARDIOACTIVE DRUG LEVEL INCREASED [None]
  - CHRONIC OBSTRUCTIVE PULMONARY DISEASE [None]
  - COLITIS ISCHAEMIC [None]
  - CONSTIPATION [None]
  - DEHYDRATION [None]
  - DIARRHOEA [None]
  - GASTRIC ULCER [None]
  - HYPOTENSION [None]
  - LOWER GASTROINTESTINAL HAEMORRHAGE [None]
  - NO THERAPEUTIC RESPONSE [None]
  - PAIN [None]
  - PERIPHERAL ISCHAEMIA [None]
  - PERIPHERAL VASCULAR DISORDER [None]
  - RED BLOOD CELL COUNT DECREASED [None]
  - RENAL DISORDER [None]
  - RESPIRATORY FAILURE [None]
  - URINARY TRACT INFECTION [None]
  - UROSEPSIS [None]
  - VENTRICULAR FIBRILLATION [None]
  - WEIGHT DECREASED [None]
